FAERS Safety Report 24777114 (Version 1)
Quarter: 2024Q4

REPORT INFORMATION
  Report Type: Spontaneous
  Country: GB (occurrence: GB)
  Receive Date: 20241226
  Receipt Date: 20241226
  Transmission Date: 20250115
  Serious: Yes (Hospitalization, Disabling, Other)
  Sender: RANBAXY
  Company Number: GB-SUN PHARMACEUTICAL INDUSTRIES LTD-2024RR-486412

PATIENT
  Age: 87 Year
  Sex: Male

DRUGS (1)
  1. PREGABALIN [Suspect]
     Active Substance: PREGABALIN
     Indication: Pain
     Dosage: 50MG TWICE A DAY MORNING AND NIGHT
     Route: 065
     Dates: end: 20241127

REACTIONS (2)
  - Confusional state [Recovering/Resolving]
  - Hallucination [Recovered/Resolved]
